FAERS Safety Report 26011584 (Version 2)
Quarter: 2025Q4

REPORT INFORMATION
  Report Type: Spontaneous
  Country: NZ (occurrence: NZ)
  Receive Date: 20251107
  Receipt Date: 20251107
  Transmission Date: 20260118
  Serious: Yes (Other)
  Sender: SANDOZ
  Company Number: NZ-SANDOZ-SDZ2025NZ082839

PATIENT
  Sex: Female

DRUGS (3)
  1. ESTRADIOL [Suspect]
     Active Substance: ESTRADIOL
     Indication: Product used for unknown indication
     Dosage: 75 UG, STRENGTH: 75 MCG/24H
     Route: 062
     Dates: start: 2025
  2. ESTRADIOL [Suspect]
     Active Substance: ESTRADIOL
     Dosage: 75 UG, STRENGTH: 75 MCG/24H
     Route: 062
     Dates: start: 2025
  3. ESTRADIOL [Suspect]
     Active Substance: ESTRADIOL
     Dosage: UNK
     Route: 062
     Dates: start: 2023

REACTIONS (3)
  - Symptom recurrence [Unknown]
  - Incorrect dose administered by device [Unknown]
  - Product adhesion issue [Unknown]

NARRATIVE: CASE EVENT DATE: 20250101
